FAERS Safety Report 11432612 (Version 1)
Quarter: 2015Q3

REPORT INFORMATION
  Report Type: Spontaneous
  Country: US (occurrence: US)
  Receive Date: 20150828
  Receipt Date: 20150828
  Transmission Date: 20151125
  Serious: Yes (Other)
  Sender: FDA-Public Use
  Company Number: US-ABBVIE-15P-163-1450387-00

PATIENT

DRUGS (5)
  1. PREDNISONE. [Concomitant]
     Active Substance: PREDNISONE
     Indication: KIDNEY TRANSPLANT REJECTION
  2. POTASSIUM [Concomitant]
     Active Substance: POTASSIUM
     Indication: PRODUCT USED FOR UNKNOWN INDICATION
  3. SYNTHROID [Suspect]
     Active Substance: LEVOTHYROXINE SODIUM
     Indication: THYROIDECTOMY
     Route: 065
  4. PROGRAF [Concomitant]
     Active Substance: TACROLIMUS\TACROLIMUS ANHYDROUS
     Indication: KIDNEY TRANSPLANT REJECTION
  5. LASIX [Concomitant]
     Active Substance: FUROSEMIDE
     Indication: PRODUCT USED FOR UNKNOWN INDICATION

REACTIONS (12)
  - Ascites [Unknown]
  - Abdominal hernia [Unknown]
  - Cardiac disorder [Unknown]
  - Mitral valve prolapse [Unknown]
  - Diarrhoea [Unknown]
  - Colon cancer [Unknown]
  - Cardiac murmur [Unknown]
  - Blood test abnormal [Unknown]
  - Right ventricular failure [Unknown]
  - Gastric cancer [Unknown]
  - White blood cell count decreased [Unknown]
  - Hepatic steatosis [Unknown]
